FAERS Safety Report 8539660 (Version 5)
Quarter: 2013Q2

REPORT INFORMATION
  Report Type: Spontaneous
  Country: US (occurrence: None)
  Receive Date: 20120315
  Receipt Date: 20120703
  Transmission Date: 20140414
  Serious: No
  Sender: FDA-Public Use
  Company Number: PHHY2011US09068

PATIENT
  Age: 32 Year
  Sex: Female
  Weight: 32 kg

DRUGS (3)
  1. GILENYA [Suspect]
     Indication: MULTIPLE SCLEROSIS
     Route: 048
     Dates: start: 20110125, end: 201106
  2. ADDERALL (AMFETAMINE ASPARTATE, AMFETAMINE SULFATE,  DEXAMFETAMINE [Concomitant]
  3. PERCOCET (OXYCODONE HYDROCHLORIDE, PARACETAMOL) [Concomitant]

REACTIONS (4)
  - FALL [None]
  - MUSCULAR WEAKNESS [None]
  - DIARRHOEA [None]
  - INFLUENZA LIKE ILLNESS [None]
